FAERS Safety Report 18304111 (Version 1)
Quarter: 2020Q3

REPORT INFORMATION
  Report Type: Report from Study
  Country: CR (occurrence: CR)
  Receive Date: 20200923
  Receipt Date: 20200923
  Transmission Date: 20201103
  Serious: Yes (Other)
  Sender: FDA-Public Use
  Company Number: NVSC2020CR258873

PATIENT
  Age: 31 Year
  Sex: Male

DRUGS (2)
  1. SCAPHO [Suspect]
     Active Substance: SECUKINUMAB
     Indication: RELAPSING-REMITTING MULTIPLE SCLEROSIS
  2. SCAPHO [Suspect]
     Active Substance: SECUKINUMAB
     Indication: ANKYLOSING SPONDYLITIS
     Dosage: 150 MG, QW
     Route: 058
     Dates: start: 20200826

REACTIONS (3)
  - Diarrhoea [Not Recovered/Not Resolved]
  - Gastrointestinal infection [Not Recovered/Not Resolved]
  - Product prescribing error [Not Recovered/Not Resolved]

NARRATIVE: CASE EVENT DATE: 20200918
